FAERS Safety Report 10376921 (Version 1)
Quarter: 2014Q3

REPORT INFORMATION
  Report Type: Spontaneous
  Country: US (occurrence: US)
  Receive Date: 20140811
  Receipt Date: 20140811
  Transmission Date: 20150326
  Serious: Yes (Death)
  Sender: FDA-Public Use
  Company Number: US-ROCHE-1448128

PATIENT
  Age: 88 Year
  Sex: Female

DRUGS (1)
  1. AVASTIN [Suspect]
     Active Substance: BEVACIZUMAB
     Indication: ANAEMIA
     Route: 042
     Dates: start: 20130614

REACTIONS (1)
  - Death [Fatal]

NARRATIVE: CASE EVENT DATE: 20140806
